FAERS Safety Report 18023725 (Version 1)
Quarter: 2020Q3

REPORT INFORMATION
  Report Type: Other
  Country: IT (occurrence: IT)
  Receive Date: 20200715
  Receipt Date: 20200715
  Transmission Date: 20201103
  Serious: No
  Sender: FDA-Public Use
  Company Number: IT-LUPIN PHARMACEUTICALS INC.-2019-04922

PATIENT
  Age: 78 Year
  Sex: Male

DRUGS (1)
  1. LEVETIRACETAM 250 MG FILM COATED TABLETS [Suspect]
     Active Substance: LEVETIRACETAM
     Indication: EPILEPSY
     Dosage: 250 MILLIGRAM, QD
     Route: 065
     Dates: start: 20190323, end: 20190327

REACTIONS (3)
  - Rash [Recovering/Resolving]
  - Dysuria [Recovering/Resolving]
  - Pollakiuria [Recovering/Resolving]

NARRATIVE: CASE EVENT DATE: 20190327
